FAERS Safety Report 20693325 (Version 1)
Quarter: 2022Q2

REPORT INFORMATION
  Report Type: Report from Study
  Country: CN (occurrence: CN)
  Receive Date: 20220410
  Receipt Date: 20220410
  Transmission Date: 20220720
  Serious: Yes (Hospitalization)
  Sender: FDA-Public Use
  Company Number: CN-BRISTOL-MYERS SQUIBB COMPANY-2022-015219

PATIENT
  Age: 86 Year
  Sex: Female

DRUGS (1)
  1. OPDIVO [Suspect]
     Active Substance: NIVOLUMAB
     Indication: Gastric cancer
     Route: 041
     Dates: start: 20211009

REACTIONS (2)
  - General physical health deterioration [Unknown]
  - Off label use [Unknown]
